FAERS Safety Report 8377345-6 (Version None)
Quarter: 2012Q2

REPORT INFORMATION
  Report Type: 
  Country: None (occurrence: None)
  Receive Date: 20120522
  Receipt Date: 20120511
  Transmission Date: 20120825
  Serious: Yes (Other)
  Sender: FDA-Public Use
  Company Number: DE-PFIZER INC-2012122423

PATIENT
  Sex: Female

DRUGS (9)
  1. MELPERON ^CT-ARZNEIMITTEL^ [Suspect]
     Indication: DEPRESSION
     Dosage: 1TABLET,TID
     Route: 065
     Dates: end: 20100218
  2. OMEPRAZOLE [Concomitant]
  3. AGOMELATINE [Suspect]
     Indication: DEPRESSION
     Dosage: 25 MG, DAILY
     Route: 065
     Dates: end: 20100218
  4. HYDROXYUREA [Suspect]
     Dosage: 1000 MG,DAILY
     Route: 065
     Dates: start: 20091013, end: 20100218
  5. HALDOL [Suspect]
     Indication: DEPRESSION
     Dosage: UNK
     Route: 065
     Dates: end: 20100218
  6. ANTACIDA FNA [Concomitant]
     Dosage: UNK
  7. FOLSAEURE ^HEVERT^ [Concomitant]
  8. MEPERIDINE HCL [Suspect]
     Dosage: UNK, IF NEEDED
     Route: 065
  9. MORPHINE SULFATE [Suspect]
     Dosage: UNK
     Route: 065
     Dates: start: 20091013

REACTIONS (3)
  - PYREXIA [None]
  - POLYHYDRAMNIOS [None]
  - SICKLE CELL ANAEMIA WITH CRISIS [None]
